FAERS Safety Report 7958016-4 (Version None)
Quarter: 2011Q4

REPORT INFORMATION
  Report Type: 
  Country: None (occurrence: None)
  Receive Date: 20111205
  Receipt Date: 20111116
  Transmission Date: 20120403
  Serious: No
  Sender: FDA-Public Use
  Company Number: US-BAYER-2011-111912

PATIENT

DRUGS (2)
  1. ALEVE (CAPLET) [Suspect]
  2. EXCEDRIN [ACETYLSALICYLIC ACID,CAFFEINE,PARACETAMOL,SALICYLAMIDE] [Suspect]

REACTIONS (2)
  - HEADACHE [None]
  - VOMITING [None]
